FAERS Safety Report 4506003-0 (Version None)
Quarter: 2004Q4

REPORT INFORMATION
  Report Type: 
  Country: None (occurrence: None)
  Receive Date: 20041119
  Receipt Date: 20041110
  Transmission Date: 20050328
  Serious: Yes (Hospitalization)
  Sender: FDA-Public Use
  Company Number: FR-JNJFOC-20040910003

PATIENT
  Sex: Female
  Weight: 19 kg

DRUGS (1)
  1. RISPERDAL [Suspect]
     Indication: DRUG USE FOR UNKNOWN INDICATION
     Route: 049

REACTIONS (7)
  - APATHY [None]
  - CEREBELLAR SYNDROME [None]
  - CONFUSIONAL STATE [None]
  - MEDICATION ERROR [None]
  - SOMNOLENCE [None]
  - TONIC CONVULSION [None]
  - URINARY INCONTINENCE [None]
